FAERS Safety Report 19622330 (Version 4)
Quarter: 2023Q1

REPORT INFORMATION
  Report Type: Report from Study
  Country: BR (occurrence: BR)
  Receive Date: 20210728
  Receipt Date: 20230224
  Transmission Date: 20230418
  Serious: Yes (Other)
  Sender: FDA-Public Use
  Company Number: NVSC2021BR150583

PATIENT
  Age: 53 Year
  Sex: Female

DRUGS (8)
  1. COSENTYX [Suspect]
     Active Substance: SECUKINUMAB
     Indication: Ankylosing spondylitis
     Dosage: 150 MG, (ATTACK DOSES)
     Route: 065
     Dates: start: 20210622
  2. COSENTYX [Suspect]
     Active Substance: SECUKINUMAB
     Dosage: 150 MG, (ATTACK DOSES)
     Route: 065
     Dates: start: 20210629
  3. COSENTYX [Suspect]
     Active Substance: SECUKINUMAB
     Dosage: 150 MG, (ATTACK DOSES)
     Route: 065
     Dates: start: 20210713
  4. COSENTYX [Suspect]
     Active Substance: SECUKINUMAB
     Dosage: 150 MG, (ATTACK DOSES)
     Route: 065
     Dates: start: 20210720
  5. COSENTYX [Suspect]
     Active Substance: SECUKINUMAB
     Dosage: 150 MG, (ATTACK DOSES)
     Route: 065
     Dates: start: 20210727
  6. COSENTYX [Suspect]
     Active Substance: SECUKINUMAB
     Dosage: 150 MG, QMO
     Route: 065
     Dates: start: 20210810
  7. COSENTYX [Suspect]
     Active Substance: SECUKINUMAB
     Dosage: 150 MG, QMO
     Route: 065
     Dates: start: 20210907
  8. HYDROXYCHLOROQUINE [Concomitant]
     Active Substance: HYDROXYCHLOROQUINE
     Indication: Product used for unknown indication
     Dosage: 0.5 DOSAGE FORM
     Route: 065

REACTIONS (21)
  - Nephrolithiasis [Not Recovered/Not Resolved]
  - Allergy to metals [Unknown]
  - Dysuria [Recovered/Resolved]
  - Decreased immune responsiveness [Unknown]
  - Urinary tract infection [Recovered/Resolved]
  - Blood urine present [Unknown]
  - Haematuria [Unknown]
  - Dysuria [Recovered/Resolved]
  - Micturition urgency [Not Recovered/Not Resolved]
  - Rheumatic disorder [Unknown]
  - Pain [Unknown]
  - Blister [Recovered/Resolved]
  - Pruritus [Recovered/Resolved]
  - Urinary tract infection [Recovered/Resolved]
  - Erythema [Recovered/Resolved]
  - Urethritis [Unknown]
  - Urticaria [Recovered/Resolved]
  - Peripheral swelling [Not Recovered/Not Resolved]
  - Urinary tract infection [Recovered/Resolved]
  - Swelling [Recovering/Resolving]
  - Arthralgia [Recovered/Resolved]

NARRATIVE: CASE EVENT DATE: 20210625
